FAERS Safety Report 18745058 (Version 1)
Quarter: 2021Q1

REPORT INFORMATION
  Report Type: Spontaneous
  Country: US (occurrence: US)
  Receive Date: 20210115
  Receipt Date: 20210115
  Transmission Date: 20210419
  Serious: No
  Sender: FDA-Public Use
  Company Number: US-SA-2021SA010672

PATIENT
  Sex: Male

DRUGS (2)
  1. LANTUS [Suspect]
     Active Substance: INSULIN GLARGINE
     Dosage: 25 IU, BID
  2. HUMALOG [Concomitant]
     Active Substance: INSULIN LISPRO
     Dosage: 3 TIMES A DAY WITH MEALS WHENEVER HIS BLOOD SUGARS GO ABOVE 150

REACTIONS (2)
  - Inappropriate schedule of product administration [Unknown]
  - Visual impairment [Unknown]
